FAERS Safety Report 18212860 (Version 1)
Quarter: 2020Q3

REPORT INFORMATION
  Report Type: Spontaneous
  Country: ZA (occurrence: ZA)
  Receive Date: 20200831
  Receipt Date: 20200831
  Transmission Date: 20201103
  Serious: Yes (Other)
  Sender: FDA-Public Use
  Company Number: ZA-BAYER-2020-175822

PATIENT
  Sex: Female

DRUGS (1)
  1. MIRENA [Suspect]
     Active Substance: LEVONORGESTREL
     Dosage: 20 ?G PER DAY CONTINOUSLY
     Route: 015
     Dates: start: 20200820

REACTIONS (5)
  - Paraesthesia [None]
  - Syncope [Unknown]
  - Procedural pain [None]
  - Stress [None]
  - Nervousness [None]

NARRATIVE: CASE EVENT DATE: 20200821
